FAERS Safety Report 7419855 (Version 3)
Quarter: 2012Q4

REPORT INFORMATION
  Report Type: 
  Country: JP (occurrence: JP)
  Receive Date: 20100615
  Receipt Date: 20121005
  Transmission Date: 20130627
  Serious: Yes (Life-Threatening, Hospitalization)
  Sender: FDA-Public Use
  Company Number: JP-ABBOTT-10P-087-0650407-00

PATIENT
  Age: 53 Year
  Sex: Female
  Weight: 69.8 kg

DRUGS (1)
  1. LEUPLIN FOR INJECTION KIT1.88 MG [Suspect]
     Indication: MENORRHAGIA
     Route: 058
     Dates: start: 20100427, end: 20100427

REACTIONS (5)
  - Portal vein thrombosis [Recovered/Resolved]
  - Mesenteric vein thrombosis [Recovered/Resolved]
  - Splenic vein thrombosis [Recovered/Resolved]
  - Pelvic venous thrombosis [Recovered/Resolved]
  - Venous thrombosis limb [Recovered/Resolved]
